FAERS Safety Report 4591170-3 (Version None)
Quarter: 2005Q1

REPORT INFORMATION
  Report Type: 
  Country: None (occurrence: None)
  Receive Date: 20050222
  Receipt Date: 20050222
  Transmission Date: 20050727
  Serious: Yes (Other)
  Sender: FDA-Public Use
  Company Number: None

PATIENT
  Sex: Male
  Weight: 70.7611 kg

DRUGS (2)
  1. BUSPAR [Suspect]
     Indication: MEDICATION ERROR
     Dosage: 1 DAY ORAL
     Route: 048
     Dates: start: 20050217, end: 20050217
  2. PROSCAR [Suspect]
     Indication: BENIGN PROSTATIC HYPERPLASIA
     Dosage: 1 DAY ORAL
     Route: 048

REACTIONS (1)
  - MEDICATION ERROR [None]
